FAERS Safety Report 19707777 (Version 1)
Quarter: 2021Q3

REPORT INFORMATION
  Report Type: Spontaneous
  Country: US (occurrence: US)
  Receive Date: 20210817
  Receipt Date: 20210817
  Transmission Date: 20211014
  Serious: No
  Sender: FDA-Public Use
  Company Number: US-PFIZER INC-2021893438

PATIENT
  Age: 94 Year
  Sex: Female
  Weight: 45.36 kg

DRUGS (3)
  1. CARVEDILOL. [Concomitant]
     Active Substance: CARVEDILOL
     Indication: HYPERTENSION
     Dosage: 12.5MG TWICE A DAY
  2. IRBESARTAN. [Concomitant]
     Active Substance: IRBESARTAN
     Indication: HYPERTENSION
     Dosage: 300MG ONCE A DAY
  3. AMLODIPINE BESILATE [Suspect]
     Active Substance: AMLODIPINE BESYLATE
     Dosage: 2.5MG ONCE DAY BY MOUTH
     Route: 048

REACTIONS (7)
  - Dizziness [Not Recovered/Not Resolved]
  - Tachycardia [Unknown]
  - Fatigue [Not Recovered/Not Resolved]
  - Peripheral swelling [Recovering/Resolving]
  - Cognitive disorder [Unknown]
  - Anxiety [Not Recovered/Not Resolved]
  - Dyskinesia [Unknown]
